FAERS Safety Report 21213097 (Version 2)
Quarter: 2022Q3

REPORT INFORMATION
  Report Type: Spontaneous
  Country: US (occurrence: US)
  Receive Date: 20220815
  Receipt Date: 20220826
  Transmission Date: 20221026
  Serious: Yes (Hospitalization)
  Sender: FDA-Public Use
  Company Number: US-Calliditas-2022CAL00288

PATIENT
  Age: 56 Year
  Sex: Female

DRUGS (4)
  1. TARPEYO [Suspect]
     Active Substance: BUDESONIDE
     Indication: IgA nephropathy
     Dosage: 16MG 4MG CAPSULES) ONCE DAILY
     Route: 048
     Dates: start: 20220721
  2. CRESTOR [Concomitant]
     Active Substance: ROSUVASTATIN CALCIUM
  3. METOPROLOL [Concomitant]
     Active Substance: METOPROLOL
  4. COLCHICINE [Concomitant]
     Active Substance: COLCHICINE

REACTIONS (1)
  - Viral myocarditis [Recovering/Resolving]

NARRATIVE: CASE EVENT DATE: 20220728
